FAERS Safety Report 17476865 (Version 1)
Quarter: 2020Q1

REPORT INFORMATION
  Report Type: Report from Study
  Country: CA (occurrence: CA)
  Receive Date: 20200228
  Receipt Date: 20200228
  Transmission Date: 20200409
  Serious: Yes (Other)
  Sender: FDA-Public Use
  Company Number: CA-JNJFOC-20191105654

PATIENT
  Age: 62 Year
  Sex: Male
  Weight: 88.8 kg

DRUGS (5)
  1. APO-OXAZEPAM [Concomitant]
     Active Substance: OXAZEPAM
     Route: 048
  2. METHOTREXATE. [Concomitant]
     Active Substance: METHOTREXATE
  3. STELARA [Suspect]
     Active Substance: USTEKINUMAB
     Indication: COLITIS ULCERATIVE
     Dosage: STRENGTH = 90 MG
     Route: 058
  4. EUROFER                            /01529801/ [Concomitant]
     Route: 048
  5. ACIDE FOLIQUE [Concomitant]
     Active Substance: FOLIC ACID
     Route: 048

REACTIONS (4)
  - Off label use [Unknown]
  - Haematochezia [Not Recovered/Not Resolved]
  - Influenza [Recovered/Resolved]
  - Product use in unapproved indication [Unknown]

NARRATIVE: CASE EVENT DATE: 20191019
